FAERS Safety Report 20925437 (Version 2)
Quarter: 2022Q2

REPORT INFORMATION
  Report Type: Spontaneous
  Country: US (occurrence: US)
  Receive Date: 20220607
  Receipt Date: 20220616
  Transmission Date: 20220720
  Serious: No
  Sender: FDA-Public Use
  Company Number: US-ALXN-A202206658

PATIENT
  Sex: Female

DRUGS (3)
  1. SOLIRIS [Suspect]
     Active Substance: ECULIZUMAB
     Indication: Myasthenia gravis
     Dosage: UNK
     Route: 065
  2. IMURAN                             /00001501/ [Concomitant]
     Indication: Product used for unknown indication
     Dosage: UNK
     Route: 065
  3. IMMUNE GLOBULIN NOS [Concomitant]
     Active Substance: IMMUNE GLOBULIN NOS
     Indication: Product used for unknown indication
     Dosage: UNK
     Route: 065

REACTIONS (6)
  - Therapeutic product effect incomplete [Unknown]
  - Scab [Unknown]
  - Skin mass [Unknown]
  - Dry skin [Unknown]
  - Alopecia [Unknown]
  - Dyspnoea [Unknown]
